FAERS Safety Report 5714569-8 (Version None)
Quarter: 2008Q2

REPORT INFORMATION
  Report Type: 
  Country: None (occurrence: None)
  Receive Date: 20080423
  Receipt Date: 20080411
  Transmission Date: 20081010
  Serious: Yes (Life-Threatening, Hospitalization)
  Sender: FDA-Public Use
  Company Number: US-WYE-H03203008

PATIENT
  Sex: Male
  Weight: 157 kg

DRUGS (11)
  1. TORISEL [Suspect]
     Indication: RENAL CELL CARCINOMA STAGE III
     Dosage: 25 MG ONCE WEEKLY TIMES 3 WEEKS
     Route: 042
     Dates: start: 20080128, end: 20080211
  2. CITALOPRAM HYDROBROMIDE [Concomitant]
     Route: 065
  3. METHYLPHENIDATE HCL [Concomitant]
     Route: 065
  4. SOTALOL HCL [Concomitant]
     Route: 065
  5. TRAZODONE HCL [Concomitant]
     Dosage: 50MG AT HS
  6. ATIVAN [Concomitant]
     Dosage: .3 MG EVERY 1 PRN
  7. TEMAZEPAM [Concomitant]
     Dosage: 15MG HS
  8. GLIPIZIDE [Concomitant]
     Route: 065
  9. HYDROCODONE BITARTRATE + ACETAMINOPHEN [Concomitant]
     Dosage: PRN
  10. WARFARIN SODIUM [Concomitant]
     Indication: ATRIAL FIBRILLATION
     Route: 065
  11. OLMESARTAN MEDOXOMIL [Concomitant]
     Route: 065

REACTIONS (10)
  - CHOLELITHIASIS [None]
  - FATIGUE [None]
  - INTERSTITIAL LUNG DISEASE [None]
  - MALAISE [None]
  - PANCREATITIS ACUTE [None]
  - PERICARDIAL EFFUSION [None]
  - PLEURAL EFFUSION [None]
  - PYREXIA [None]
  - RASH ERYTHEMATOUS [None]
  - RASH MACULO-PAPULAR [None]
